FAERS Safety Report 5606088-4 (Version None)
Quarter: 2008Q1

REPORT INFORMATION
  Report Type: 
  Country: None (occurrence: None)
  Receive Date: 20080129
  Receipt Date: 20080117
  Transmission Date: 20080703
  Serious: Yes (Death)
  Sender: FDA-Public Use
  Company Number: AT-PURDUE-DEU_2007_0003481

PATIENT
  Age: 24 Year
  Sex: Male
  Weight: 68 kg

DRUGS (6)
  1. CANNABIS [Concomitant]
  2. COCAINE [Concomitant]
  3. METHADONE HCL [Suspect]
  4. OXAZEPAM [Suspect]
  5. FLUNITRAZEPAM [Concomitant]
  6. MORPHINE [Suspect]
     Indication: DRUG ABUSE

REACTIONS (1)
  - MULTIPLE DRUG OVERDOSE [None]
